FAERS Safety Report 5954472-1 (Version None)
Quarter: 2008Q4

REPORT INFORMATION
  Report Type: 
  Country: None (occurrence: None)
  Receive Date: 20081113
  Receipt Date: 20081113
  Transmission Date: 20090506
  Serious: Yes (Hospitalization)
  Sender: FDA-Public Use
  Company Number: None

PATIENT
  Sex: Male
  Weight: 78.3 kg

DRUGS (2)
  1. CARBOPLATIN [Suspect]
     Dosage: 668 MG
  2. TAXOL [Suspect]
     Dosage: 402 MG

REACTIONS (1)
  - NEUTROPHIL COUNT DECREASED [None]
